FAERS Safety Report 8557299-X (Version None)
Quarter: 2012Q3

REPORT INFORMATION
  Report Type: 
  Country: None (occurrence: None)
  Receive Date: 20120801
  Receipt Date: 20120727
  Transmission Date: 20120928
  Serious: Yes (Other)
  Sender: FDA-Public Use
  Company Number: US-PFIZER INC-2012182941

PATIENT
  Age: 15 Year
  Sex: Male
  Weight: 145 kg

DRUGS (12)
  1. LEXAPRO [Concomitant]
     Dosage: 20 MG, DAILY
  2. MELATONIN [Concomitant]
     Dosage: 3 MG, DAILY
  3. NEXIUM [Concomitant]
     Dosage: UNK,DAILY
  4. XANAX [Concomitant]
     Dosage: UNK
     Route: 048
  5. ABILIFY [Suspect]
     Dosage: UNK
  6. CELEBREX [Concomitant]
     Dosage: 200 MG, DAILY
     Route: 048
  7. ULTRAM [Concomitant]
     Dosage: 50 MG, DAILY
     Route: 048
  8. CARAFATE [Concomitant]
     Dosage: 1 MG, 4X/DAY
     Route: 048
  9. TRAZODONE [Concomitant]
     Dosage: 200 MG, DAILY
  10. VITAMIN D [Concomitant]
     Dosage: 200 MG, DAILY
  11. NEURONTIN [Suspect]
     Indication: NEURALGIA
     Dosage: 300 MG, DAILY
     Dates: start: 20120301, end: 20120723
  12. ZOLOFT [Suspect]
     Indication: EMOTIONAL DISORDER
     Dosage: UNK
     Dates: start: 20080901, end: 20081201

REACTIONS (3)
  - GAIT DISTURBANCE [None]
  - INTENTIONAL SELF-INJURY [None]
  - ARTHRALGIA [None]
